FAERS Safety Report 22240653 (Version 1)
Quarter: 2023Q2

REPORT INFORMATION
  Report Type: Spontaneous
  Country: IT (occurrence: IT)
  Receive Date: 20230421
  Receipt Date: 20230421
  Transmission Date: 20230721
  Serious: Yes (Other)
  Sender: FDA-Public Use
  Company Number: None

PATIENT
  Sex: Female

DRUGS (1)
  1. LOVASTATIN [Suspect]
     Active Substance: LOVASTATIN
     Indication: Hypercholesterolaemia
     Dosage: EVERY EVENING, ONE AFTER DINNER
     Route: 065
     Dates: start: 2022

REACTIONS (2)
  - Altered state of consciousness [Not Recovered/Not Resolved]
  - Nightmare [Not Recovered/Not Resolved]

NARRATIVE: CASE EVENT DATE: 20220101
